FAERS Safety Report 13433855 (Version 1)
Quarter: 2017Q2

REPORT INFORMATION
  Report Type: Report from Study
  Country: ES (occurrence: ES)
  Receive Date: 20170412
  Receipt Date: 20170412
  Transmission Date: 20170830
  Serious: Yes (Hospitalization, Other)
  Sender: FDA-Public Use
  Company Number: ES-ASTRAZENECA-2017SE35622

PATIENT
  Age: 80 Year
  Sex: Female

DRUGS (5)
  1. ARIXTRA [Interacting]
     Active Substance: FONDAPARINUX SODIUM
     Indication: ACUTE MYOCARDIAL INFARCTION
     Route: 058
     Dates: start: 20161113, end: 20161117
  2. PARACETAMOL [Concomitant]
     Active Substance: ACETAMINOPHEN
     Indication: PAIN
     Route: 048
     Dates: start: 20161113
  3. BRILIQUE [Suspect]
     Active Substance: TICAGRELOR
     Indication: ACUTE MYOCARDIAL INFARCTION
     Route: 048
     Dates: start: 20161113
  4. ADIRO [Interacting]
     Active Substance: ASPIRIN
     Indication: ACUTE MYOCARDIAL INFARCTION
     Route: 048
     Dates: start: 20161113
  5. ENALAPRIL [Concomitant]
     Active Substance: ENALAPRIL
     Indication: ACUTE MYOCARDIAL INFARCTION
     Route: 048
     Dates: start: 20161113

REACTIONS (7)
  - Leukoencephalopathy [Unknown]
  - Muscle haemorrhage [Recovering/Resolving]
  - Coagulation time prolonged [Recovered/Resolved]
  - Subcutaneous haematoma [Unknown]
  - Anaemia [Recovering/Resolving]
  - Cerebral atrophy [Unknown]
  - Drug interaction [Unknown]

NARRATIVE: CASE EVENT DATE: 20161117
